FAERS Safety Report 8140689-7 (Version None)
Quarter: 2012Q1

REPORT INFORMATION
  Report Type: 
  Country: None (occurrence: None)
  Receive Date: 20120216
  Receipt Date: 20120214
  Transmission Date: 20120608
  Serious: Yes (Hospitalization)
  Sender: FDA-Public Use
  Company Number: CN-AMGEN-CHNSP2012009845

PATIENT
  Age: 39 Year
  Sex: Female
  Weight: 54.5 kg

DRUGS (6)
  1. BEVACIZUMAB [Suspect]
     Indication: BREAST CANCER METASTATIC
     Dosage: 825 MG, UNK
     Dates: start: 20101021
  2. SODIUM BICARBONATE [Suspect]
     Indication: BREAST CANCER METASTATIC
     Dosage: 10 ML, Q8H
     Dates: start: 20101029
  3. NEUPOGEN [Suspect]
     Indication: BREAST CANCER METASTATIC
     Dosage: 300 MUG, QD
     Route: 058
     Dates: start: 20101029
  4. DOCETAXEL [Suspect]
     Indication: BREAST CANCER METASTATIC
     Dosage: UNK
  5. FLUCONAZOLE [Concomitant]
     Dosage: 400 MG, UNK
     Dates: start: 20101029
  6. INTRALIPID                         /00272201/ [Concomitant]
     Dosage: UNK
     Route: 042
     Dates: start: 20101029

REACTIONS (1)
  - FEBRILE NEUTROPENIA [None]
